FAERS Safety Report 12154761 (Version 1)
Quarter: 2016Q1

REPORT INFORMATION
  Report Type: Spontaneous
  Country: US (occurrence: None)
  Receive Date: 20160304
  Receipt Date: 20160304
  Transmission Date: 20160526
  Serious: Yes (Death)
  Sender: FDA-Public Use
  Company Number: None

PATIENT
  Age: 43 Year
  Sex: Female

DRUGS (2)
  1. PREDNISONE 5MG CADISTA [Suspect]
     Active Substance: PREDNISONE
     Indication: HEART TRANSPLANT
     Route: 048
     Dates: start: 20150807
  2. CARAFATE [Suspect]
     Active Substance: SUCRALFATE
     Indication: HEART TRANSPLANT
     Dosage: 1GM/10ML BID ORAL
     Route: 048

REACTIONS (1)
  - Death [None]

NARRATIVE: CASE EVENT DATE: 20160210
